FAERS Safety Report 9185814 (Version 1)
Quarter: 2013Q1

REPORT INFORMATION
  Report Type: Spontaneous
  Country: FR (occurrence: FR)
  Receive Date: 20130325
  Receipt Date: 20130325
  Transmission Date: 20140127
  Serious: Yes (Other)
  Sender: FDA-Public Use
  Company Number: FR-AMGEN-FRASP2013017838

PATIENT
  Sex: Female
  Weight: 1.41 kg

DRUGS (1)
  1. ARANESP [Suspect]
     Dosage: 40 MG, Q2WK
     Route: 064

REACTIONS (2)
  - Premature baby [Unknown]
  - Foetal growth restriction [Unknown]
